FAERS Safety Report 23165755 (Version 1)
Quarter: 2023Q4

REPORT INFORMATION
  Report Type: Spontaneous
  Country: IR (occurrence: IR)
  Receive Date: 20231109
  Receipt Date: 20231109
  Transmission Date: 20240110
  Serious: Yes (Death, Other)
  Sender: FDA-Public Use
  Company Number: IR-SA-2023SA342243

PATIENT
  Age: 20 Year
  Sex: Female

DRUGS (2)
  1. DOCETAXEL [Suspect]
     Active Substance: DOCETAXEL\DOCETAXEL ANHYDROUS
     Dosage: 125 MG, Q3W
  2. GEMCITABINE [Suspect]
     Active Substance: GEMCITABINE
     Dosage: 2000 MG, Q3W

REACTIONS (2)
  - Epithelioid sarcoma recurrent [Fatal]
  - Drug ineffective [Fatal]
